FAERS Safety Report 9675718 (Version 3)
Quarter: 2014Q2

REPORT INFORMATION
  Report Type: Spontaneous
  Country: BR (occurrence: BR)
  Receive Date: 20131107
  Receipt Date: 20140404
  Transmission Date: 20141212
  Serious: Yes (Hospitalization)
  Sender: FDA-Public Use
  Company Number: BR-ABBVIE-13P-020-1165443-00

PATIENT
  Age: 36 Year
  Sex: Male
  Weight: 58 kg

DRUGS (4)
  1. HUMIRA [Suspect]
     Indication: PSORIATIC ARTHROPATHY
     Route: 058
     Dates: start: 20130401, end: 20131026
  2. HUMIRA [Suspect]
     Indication: ANKYLOSING SPONDYLITIS
     Dosage: DOSAGE DECREASED
  3. DICLOFENAC/CODEINE (CODATEN) [Concomitant]
     Indication: PAIN
  4. PARACETAMOL/CODEINE (TYLEX) [Concomitant]
     Indication: PAIN

REACTIONS (10)
  - Immunodeficiency [Unknown]
  - Pneumonia [Unknown]
  - Haemoptysis [Unknown]
  - Chest pain [Unknown]
  - Abdominal pain [Not Recovered/Not Resolved]
  - Arthralgia [Not Recovered/Not Resolved]
  - Pain in extremity [Not Recovered/Not Resolved]
  - Inflammation [Unknown]
  - Pulmonary mass [Unknown]
  - Benign lung neoplasm [Unknown]
